FAERS Safety Report 20315930 (Version 2)
Quarter: 2022Q1

REPORT INFORMATION
  Report Type: Spontaneous
  Country: US (occurrence: None)
  Receive Date: 20220110
  Receipt Date: 20220110
  Transmission Date: 20220423
  Serious: Yes (Other)
  Sender: FDA-Public Use
  Company Number: US-Hikma Pharmaceuticals USA Inc.-US-H14001-22-00016

PATIENT
  Age: 3 Month
  Sex: Female

DRUGS (1)
  1. DIGOXIN [Suspect]
     Active Substance: DIGOXIN
     Indication: Blood pressure management
     Dosage: UNKNOWN
     Route: 065

REACTIONS (2)
  - Pulmonary hypertension [Unknown]
  - Right ventricular dysfunction [Unknown]
